FAERS Safety Report 9871745 (Version 3)
Quarter: 2014Q1

REPORT INFORMATION
  Report Type: Spontaneous
  Country: SK (occurrence: SK)
  Receive Date: 20140205
  Receipt Date: 20140220
  Transmission Date: 20141002
  Serious: Yes (Other)
  Sender: FDA-Public Use
  Company Number: SK-BAXTER-2014BAX004394

PATIENT
  Sex: Female
  Weight: 65 kg

DRUGS (4)
  1. KIOVIG 100 MG/ML INF?ZNY INTRAVEN?ZNY ROZTOK [Suspect]
     Indication: PRODUCT USED FOR UNKNOWN INDICATION
     Dosage: INFUSED WITHOUT A PUMP
     Route: 042
     Dates: start: 20140114, end: 20140114
  2. CALTRATE [Concomitant]
     Indication: PRODUCT USED FOR UNKNOWN INDICATION
     Route: 065
  3. LOMAC [Concomitant]
     Indication: PRODUCT USED FOR UNKNOWN INDICATION
     Route: 065
  4. NOLIPREL [Concomitant]
     Indication: PRODUCT USED FOR UNKNOWN INDICATION
     Route: 065

REACTIONS (2)
  - Angina pectoris [Unknown]
  - Hypertension [Recovered/Resolved]
